FAERS Safety Report 6902649-0 (Version None)
Quarter: 2010Q3

REPORT INFORMATION
  Report Type: 
  Country: None (occurrence: None)
  Receive Date: 20100803
  Receipt Date: 20080802
  Transmission Date: 20110219
  Serious: No
  Sender: FDA-Public Use
  Company Number: US-PFIZER INC-2008043693

PATIENT
  Sex: Female
  Weight: 69.09 kg

DRUGS (6)
  1. LYRICA [Suspect]
     Indication: NEURALGIA
     Route: 048
     Dates: start: 20080519
  2. MULTI-VITAMINS [Concomitant]
  3. ACETYLSALICYLIC ACID SRT [Concomitant]
  4. CAFFEINE [Concomitant]
  5. ANALGESICS [Concomitant]
  6. HYDROCODONE BITARTRATE [Concomitant]

REACTIONS (1)
  - PAIN [None]
